FAERS Safety Report 25923569 (Version 3)
Quarter: 2025Q4

REPORT INFORMATION
  Report Type: Spontaneous
  Country: US (occurrence: US)
  Receive Date: 20251015
  Receipt Date: 20251118
  Transmission Date: 20260118
  Serious: No
  Sender: TOLMAR
  Company Number: US-Tolmar-TLM-2025-07285

PATIENT

DRUGS (3)
  1. ELIGARD [Suspect]
     Active Substance: LEUPROLIDE ACETATE
     Indication: Prostate cancer
     Dosage: SN#:1736564285541?GTIN#:00362935227106?DEC-2026; NOV-2026; 30-NOV-2026?DOSE NOT ADMINISTERED
  2. ELIGARD [Suspect]
     Active Substance: LEUPROLIDE ACETATE
     Dosage: REPLACEMENT DOSE GIVEN
  3. DEVICE [Suspect]
     Active Substance: DEVICE
     Indication: Prostate cancer
     Dosage: SN#:1736564285541?GTIN#:00362935227106?DEC-2026; NOV-2026; 30-NOV-2026

REACTIONS (4)
  - Intercepted product administration error [Unknown]
  - Device leakage [Unknown]
  - Product quality issue [Unknown]
  - Wrong technique in product usage process [Unknown]
